FAERS Safety Report 7989743-0 (Version None)
Quarter: 2011Q4

REPORT INFORMATION
  Report Type: 
  Country: None (occurrence: None)
  Receive Date: 20111219
  Receipt Date: 20111209
  Transmission Date: 20120403
  Serious: Yes (Other)
  Sender: FDA-Public Use
  Company Number: SE-UCBSA-047474

PATIENT
  Age: 72 Year
  Sex: Male

DRUGS (7)
  1. ENALAPRIL ACTAVIS [Concomitant]
  2. VALPROATE SODIUM [Concomitant]
  3. KEPPRA [Suspect]
     Indication: EPILEPSY
     Route: 048
     Dates: start: 20111028, end: 20111028
  4. WARFARIN SODIUM [Concomitant]
     Dosage: 2.5 MG
  5. MOVIPREP [Concomitant]
  6. SIMVASTATIN [Concomitant]
  7. AMLODIPIN ACCORD [Concomitant]

REACTIONS (4)
  - GENERAL PHYSICAL HEALTH DETERIORATION [None]
  - APNOEA [None]
  - DEPRESSED LEVEL OF CONSCIOUSNESS [None]
  - SOMNOLENCE [None]
